FAERS Safety Report 13690433 (Version 3)
Quarter: 2017Q4

REPORT INFORMATION
  Report Type: Spontaneous
  Country: CA (occurrence: CA)
  Receive Date: 20170626
  Receipt Date: 20171017
  Transmission Date: 20180320
  Serious: Yes (Other)
  Sender: FDA-Public Use
  Company Number: CA-PFIZER INC-2017270107

PATIENT
  Sex: Female

DRUGS (11)
  1. CELEXA [Concomitant]
     Active Substance: CITALOPRAM HYDROBROMIDE
  2. PENICILLIN [Concomitant]
     Active Substance: PENICILLIN
  3. VITAMIN D [Concomitant]
     Active Substance: CHOLECALCIFEROL
  4. DEXILANT [Concomitant]
     Active Substance: DEXLANSOPRAZOLE
     Indication: GASTROOESOPHAGEAL REFLUX DISEASE
  5. CLONAZEPAM. [Concomitant]
     Active Substance: CLONAZEPAM
     Indication: INSOMNIA
  6. METHOTREXATE SODIUM. [Suspect]
     Active Substance: METHOTREXATE SODIUM
     Dosage: 20 MG, WEEKLY
     Dates: start: 201612
  7. CALCIUM [Concomitant]
     Active Substance: CALCIUM
  8. LEUCOVORIN /00566701/ [Concomitant]
     Active Substance: LEUCOVORIN
  9. IRON [Concomitant]
     Active Substance: IRON
  10. LYRICA [Concomitant]
     Active Substance: PREGABALIN
  11. HUMIRA [Concomitant]
     Active Substance: ADALIMUMAB

REACTIONS (4)
  - Pruritus [Recovered/Resolved]
  - Hypertension [Recovered/Resolved]
  - Headache [Recovered/Resolved]
  - Rash [Recovered/Resolved]
